FAERS Safety Report 11432489 (Version 3)
Quarter: 2015Q4

REPORT INFORMATION
  Report Type: Spontaneous
  Country: US (occurrence: US)
  Receive Date: 20150828
  Receipt Date: 20151125
  Transmission Date: 20160304
  Serious: Yes (Disabling, Other)
  Sender: FDA-Public Use
  Company Number: US-REGENERON PHARMACEUTICALS, INC.-2015-11068

PATIENT

DRUGS (1)
  1. EYLEA [Suspect]
     Active Substance: AFLIBERCEPT
     Indication: NEOVASCULAR AGE-RELATED MACULAR DEGENERATION
     Dosage: 2 MG MILLIGRAM(S), EVERY 4-5 WEEKS
     Route: 031
     Dates: start: 20140626, end: 20150327

REACTIONS (5)
  - Eye infection bacterial [Recovered/Resolved]
  - Endophthalmitis [Recovered/Resolved]
  - Vitrectomy [Unknown]
  - Blindness [Not Recovered/Not Resolved]
  - Bacterial infection [None]

NARRATIVE: CASE EVENT DATE: 20150328
